FAERS Safety Report 6369995-3 (Version None)
Quarter: 2009Q3

REPORT INFORMATION
  Report Type: 
  Country: None (occurrence: None)
  Receive Date: 20090923
  Receipt Date: 20081212
  Transmission Date: 20100115
  Serious: No
  Sender: FDA-Public Use
  Company Number: US-ASTRAZENECA-2005UW11851

PATIENT
  Age: 61 Year
  Sex: Female
  Weight: 59 kg

DRUGS (3)
  1. SEROQUEL [Suspect]
     Indication: BIPOLAR DISORDER
     Route: 048
     Dates: start: 20021001, end: 20080201
  2. LAMICTAL [Interacting]
     Dates: start: 20021001, end: 20080201
  3. AMBIEN [Interacting]
     Indication: SLEEP DISORDER
     Route: 048
     Dates: start: 20021001, end: 20080201

REACTIONS (10)
  - ALOPECIA [None]
  - BALANCE DISORDER [None]
  - ILL-DEFINED DISORDER [None]
  - JAW DISORDER [None]
  - MALAISE [None]
  - MENTAL IMPAIRMENT [None]
  - MUSCULAR WEAKNESS [None]
  - SEDATION [None]
  - TINNITUS [None]
  - VISUAL IMPAIRMENT [None]
